FAERS Safety Report 5083027-9 (Version None)
Quarter: 2006Q3

REPORT INFORMATION
  Report Type: 
  Country: None (occurrence: None)
  Receive Date: 20060814
  Receipt Date: 20060727
  Transmission Date: 20061208
  Serious: Yes (Other)
  Sender: FDA-Public Use
  Company Number: 2006EU001851

PATIENT
  Sex: Female

DRUGS (2)
  1. PROTOPIC [Suspect]
     Indication: DERMATITIS ATOPIC
     Dosage: BID, TOPICAL
     Route: 061
     Dates: start: 20051101, end: 20060222
  2. ESTROGEN NOS [Concomitant]

REACTIONS (1)
  - HODGKIN'S DISEASE [None]
